FAERS Safety Report 8349728-1 (Version None)
Quarter: 2012Q2

REPORT INFORMATION
  Report Type: 
  Country: None (occurrence: None)
  Receive Date: 20120509
  Receipt Date: 20120509
  Transmission Date: 20120825
  Serious: Yes (Death, Hospitalization)
  Sender: FDA-Public Use
  Company Number: None

PATIENT
  Sex: Female
  Weight: 11.1 kg

DRUGS (2)
  1. MITOXANTRONE HYDROCHLORIDE [Suspect]
     Dosage: 4 MG
     Dates: end: 20111108
  2. CYTARABINE [Suspect]
     Dosage: 2948
     Dates: end: 20111101

REACTIONS (8)
  - BLOOD CULTURE POSITIVE [None]
  - CSF PRESSURE INCREASED [None]
  - BLOOD BILIRUBIN INCREASED [None]
  - CHOLANGITIS [None]
  - NUCLEAR MAGNETIC RESONANCE IMAGING BRAIN ABNORMAL [None]
  - HEPATITIS [None]
  - PSEUDOMONAS INFECTION [None]
  - HYPERTENSION [None]
